FAERS Safety Report 8106571-6 (Version None)
Quarter: 2012Q1

REPORT INFORMATION
  Report Type: 
  Country: None (occurrence: None)
  Receive Date: 20120130
  Receipt Date: 20120125
  Transmission Date: 20120608
  Serious: Yes (Other)
  Sender: FDA-Public Use
  Company Number: 2012020032

PATIENT
  Age: 56 Year
  Sex: Female

DRUGS (2)
  1. FRAGMIN [Suspect]
     Indication: PERIPHERAL EMBOLISM
     Dosage: UNK
     Dates: end: 20100529
  2. FRAGMIN [Suspect]
     Indication: ARTERIAL THROMBOSIS LIMB
     Dosage: UNK
     Dates: end: 20100529

REACTIONS (1)
  - CEREBRAL INFARCTION [None]
